FAERS Safety Report 7304931-4 (Version None)
Quarter: 2011Q1

REPORT INFORMATION
  Report Type: 
  Country: None (occurrence: None)
  Receive Date: 20110222
  Receipt Date: 20110209
  Transmission Date: 20110831
  Serious: Yes (Hospitalization)
  Sender: FDA-Public Use
  Company Number: BR-SANOFI-AVENTIS-2011SA008805

PATIENT
  Age: 0 Day
  Sex: Male
  Weight: 1.9 kg

DRUGS (3)
  1. CLEXANE SYRINGES [Suspect]
     Dosage: IN THE MORNING
     Route: 063
     Dates: start: 20110116
  2. CLEXANE SYRINGES [Suspect]
     Dosage: IN THE AFTERNOON
     Route: 064
     Dates: start: 20101223, end: 20110115
  3. CLEXANE SYRINGES [Suspect]
     Indication: THROMBOSIS PROPHYLAXIS
     Dosage: IN THE MORNING
     Route: 064
     Dates: start: 20101223, end: 20110115

REACTIONS (3)
  - DRUG EXPOSURE VIA BREAST MILK [None]
  - SMALL FOR DATES BABY [None]
  - DRUG EXPOSURE DURING PREGNANCY [None]
